FAERS Safety Report 5515444-4 (Version None)
Quarter: 2007Q4

REPORT INFORMATION
  Report Type: 
  Country: None (occurrence: None)
  Receive Date: 20071113
  Receipt Date: 20070216
  Transmission Date: 20080405
  Serious: No
  Sender: FDA-Public Use
  Company Number: A0640066A

PATIENT
  Age: 65 Year
  Sex: Female

DRUGS (15)
  1. COREG [Suspect]
     Indication: CARDIOMYOPATHY
     Dosage: 25MG TWICE PER DAY
     Route: 048
     Dates: start: 20060101
  2. HYZAAR [Concomitant]
  3. WARFARIN SODIUM [Concomitant]
  4. FOLTX [Concomitant]
  5. METFORMIN HCL [Concomitant]
  6. CYMBALTA [Concomitant]
  7. NEXIUM [Concomitant]
  8. POTASSIUM CHLORIDE [Concomitant]
  9. SYNTHROID [Concomitant]
  10. GABAPENTIN [Concomitant]
  11. DARVOCET [Concomitant]
  12. CRESTOR [Concomitant]
  13. XANAX [Concomitant]
  14. TRAZODONE HCL [Concomitant]
  15. METOCLOPRAMIDE [Concomitant]

REACTIONS (3)
  - ASTHENIA [None]
  - DRUG INEFFECTIVE [None]
  - MUSCULAR WEAKNESS [None]
